FAERS Safety Report 5781717-3 (Version None)
Quarter: 2008Q2

REPORT INFORMATION
  Report Type: 
  Country: None (occurrence: None)
  Receive Date: 20080623
  Receipt Date: 20080611
  Transmission Date: 20081010
  Serious: Yes (Other)
  Sender: FDA-Public Use
  Company Number: US-BAYER-200812419BCC

PATIENT
  Age: 77 Year
  Sex: Male
  Weight: 82 kg

DRUGS (1)
  1. ASPIRIN [Suspect]
     Indication: MYALGIA
     Route: 048
     Dates: start: 19830101

REACTIONS (2)
  - ANAEMIA [None]
  - INTESTINAL HAEMORRHAGE [None]
